FAERS Safety Report 8583585 (Version 3)
Quarter: 2013Q4

REPORT INFORMATION
  Report Type: Spontaneous
  Country: US (occurrence: US)
  Receive Date: 20120529
  Receipt Date: 20131113
  Transmission Date: 20140711
  Serious: Yes (Hospitalization)
  Sender: FDA-Public Use
  Company Number: US-BAYER-2012-052359

PATIENT
  Age: 16 Year
  Sex: Female
  Weight: 65.76 kg

DRUGS (24)
  1. YAZ [Suspect]
     Indication: ACNE
     Dosage: UNK
     Dates: start: 20110117, end: 20110317
  2. GIANVI [Suspect]
     Indication: ACNE
     Dosage: UNK
     Dates: start: 20101026, end: 20110527
  3. DORYX [Concomitant]
     Indication: ANTIBIOTIC THERAPY
     Dosage: 150 MG, UNK
     Dates: start: 20100901, end: 20110407
  4. TRAMADOL HYDROCHLORIDE [Concomitant]
     Indication: PROCEDURAL PAIN
     Dosage: 50 MG, UNK
     Dates: start: 20100923, end: 20111130
  5. DOXYCYCLINE [Concomitant]
     Indication: ACNE
     Dosage: 100 MG, UNK
     Dates: start: 20100924
  6. CLINDAMYCIN [Concomitant]
     Dosage: 900 MG, UNK
     Route: 042
  7. DEXAMETHASONE [Concomitant]
     Dosage: 8 MG, UNK
  8. FENTANYL [Concomitant]
     Dosage: 100
  9. HYDROMORPHONE [Concomitant]
     Dosage: 1 MG, UNK
  10. LIDOCAINE [Concomitant]
     Dosage: 100 MG, UNK
  11. LORTAB [Concomitant]
     Dosage: 7.5-500 MG 3 TABLETS, PRN
     Route: 048
  12. MARCAINE [Concomitant]
     Dosage: 0.5% 10 ML
  13. ONDANSETRON [Concomitant]
     Dosage: 4 MG, UNK
  14. OXYCODONE W/PARACETAMOL [Concomitant]
     Dosage: 5-325 MG 1-2 TABLETS EVERY 4 HOURS AS NEEDED
     Route: 048
  15. PERCOCET [Concomitant]
     Dosage: 5/325
     Route: 048
  16. PROMETHAZINE [Concomitant]
     Dosage: 25 MG, EVERY 6 HOURS AS NEEDED
  17. PROPOFOL [Concomitant]
     Dosage: 200 MG, UNK
  18. SEVOFLURANE [Concomitant]
  19. VERSED [Concomitant]
     Dosage: 2 MG, UNK
  20. VICODIN [Concomitant]
     Dosage: 5-500 MG 1-2 TABLETS EVERY 6 HOURS AS NEEDED
     Route: 048
  21. ALEVE [Concomitant]
  22. MVI [Concomitant]
  23. ULTRAM [Concomitant]
  24. TYLENOL [PARACETAMOL] [Concomitant]

REACTIONS (5)
  - Deep vein thrombosis [Recovering/Resolving]
  - Pain [Recovering/Resolving]
  - Injury [None]
  - Emotional distress [None]
  - Off label use [None]
